FAERS Safety Report 6897822-4 (Version None)
Quarter: 2010Q3

REPORT INFORMATION
  Report Type: 
  Country: None (occurrence: None)
  Receive Date: 20100802
  Receipt Date: 20070726
  Transmission Date: 20110219
  Serious: No
  Sender: FDA-Public Use
  Company Number: US-PFIZER INC-2007063045

PATIENT
  Sex: Male
  Weight: 83.9 kg

DRUGS (9)
  1. LYRICA [Suspect]
     Indication: NEURALGIA
     Route: 048
     Dates: start: 20070709
  2. KLOR-CON [Concomitant]
     Route: 048
  3. LASIX [Concomitant]
     Route: 048
  4. MULTI-VITAMINS [Concomitant]
     Route: 048
  5. MILK THISTLE [Concomitant]
     Indication: HEPATIC FUNCTION ABNORMAL
     Route: 048
  6. NEXIUM [Concomitant]
     Indication: GASTROINTESTINAL HAEMORRHAGE
     Route: 048
  7. COLACE [Concomitant]
     Route: 048
  8. VICOPROFEN [Concomitant]
     Indication: PAIN
     Route: 048
  9. OXYCODONE [Concomitant]
     Indication: PAIN
     Route: 048

REACTIONS (7)
  - ARTHRALGIA [None]
  - DRUG INEFFECTIVE [None]
  - FATIGUE [None]
  - MALAISE [None]
  - PAIN [None]
  - SLUGGISHNESS [None]
  - WEIGHT DECREASED [None]
